FAERS Safety Report 6300153-4 (Version None)
Quarter: 2009Q3

REPORT INFORMATION
  Report Type: 
  Country: None (occurrence: None)
  Receive Date: 20090806
  Receipt Date: 20090730
  Transmission Date: 20100115
  Serious: Yes (Hospitalization)
  Sender: FDA-Public Use
  Company Number: PHHO2006AR14848

PATIENT
  Sex: Male
  Weight: 85.9 kg

DRUGS (12)
  1. VALSARTAN [Suspect]
     Indication: CARDIOVASCULAR DISORDER
     Dosage: LEVEL 1
     Route: 048
     Dates: start: 20030602
  2. VALSARTAN [Suspect]
     Dosage: LEVEL 2
     Route: 048
  3. VALSARTAN [Suspect]
     Dosage: LEVEL 2
     Route: 048
     Dates: start: 20060925, end: 20080803
  4. BLINDED NO TREATMENT RECEIVED NOMED [Suspect]
     Indication: GLUCOSE TOLERANCE IMPAIRED
     Dosage: LEVEL 1
     Route: 048
     Dates: start: 20030602
  5. BLINDED PLACEBO PLACEBO [Suspect]
     Indication: GLUCOSE TOLERANCE IMPAIRED
     Dosage: LEVEL 1
     Route: 048
     Dates: start: 20030602
  6. STARLIX [Suspect]
     Indication: GLUCOSE TOLERANCE IMPAIRED
     Dosage: LEVEL 1
     Route: 048
     Dates: start: 20030602
  7. BLINDED NO TREATMENT RECEIVED NOMED [Suspect]
     Dosage: LEVEL 2
     Route: 048
  8. BLINDED PLACEBO PLACEBO [Suspect]
     Dosage: LEVEL 2
     Route: 048
  9. STARLIX [Suspect]
     Dosage: LEVEL 2
     Route: 048
  10. BLINDED NO TREATMENT RECEIVED NOMED [Suspect]
     Dosage: LEVEL 2
     Route: 048
     Dates: start: 20060925, end: 20080803
  11. BLINDED PLACEBO PLACEBO [Suspect]
     Dosage: LEVEL 2
     Route: 048
     Dates: start: 20060925, end: 20080803
  12. STARLIX [Suspect]
     Dosage: LEVEL 2
     Route: 048
     Dates: start: 20060925, end: 20080803

REACTIONS (17)
  - ACUTE CORONARY SYNDROME [None]
  - ANAEMIA [None]
  - ANGINA PECTORIS [None]
  - ASTHENIA [None]
  - CAROTID ARTERY DISEASE [None]
  - CHEST PAIN [None]
  - COLECTOMY [None]
  - DIZZINESS [None]
  - DYSPNOEA [None]
  - ELECTROCARDIOGRAM ST SEGMENT DEPRESSION [None]
  - GASTROINTESTINAL ANGIODYSPLASIA [None]
  - HAEMORRHOIDS [None]
  - INTERMITTENT CLAUDICATION [None]
  - PROTEINURIA [None]
  - RENAL FAILURE ACUTE [None]
  - SPIROMETRY ABNORMAL [None]
  - TINNITUS [None]
